FAERS Safety Report 12475082 (Version 4)
Quarter: 2019Q4

REPORT INFORMATION
  Report Type: Spontaneous
  Country: US (occurrence: US)
  Receive Date: 20160617
  Receipt Date: 20191019
  Transmission Date: 20200122
  Serious: Yes (Hospitalization, Other)
  Sender: FDA-Public Use
  Company Number: US-TEVA-669029ACC

PATIENT
  Sex: Female

DRUGS (1)
  1. PARAGARD T 380A [Suspect]
     Active Substance: COPPER
     Dates: start: 20071112, end: 20160608

REACTIONS (7)
  - Complication associated with device [Recovered/Resolved with Sequelae]
  - Maternal exposure during pregnancy [Unknown]
  - Haemorrhage [Not Recovered/Not Resolved]
  - Pain [Unknown]
  - Pregnancy on contraceptive [Unknown]
  - Device breakage [Recovered/Resolved with Sequelae]
  - Embedded device [Recovered/Resolved]

NARRATIVE: CASE EVENT DATE: 20160607
